FAERS Safety Report 9782597 (Version 1)
Quarter: 2013Q4

REPORT INFORMATION
  Report Type: Spontaneous
  Country: US (occurrence: US)
  Receive Date: 20131226
  Receipt Date: 20131226
  Transmission Date: 20140711
  Serious: Yes (Life-Threatening)
  Sender: FDA-Public Use
  Company Number: PHEH2013US026190

PATIENT
  Age: 72 Year
  Sex: Male

DRUGS (9)
  1. RECLAST [Suspect]
     Dosage: UNK UKN, UNK
     Route: 042
     Dates: start: 20131216
  2. PLAVIX [Concomitant]
     Dosage: UNK UKN, UNK
  3. ATORVASTATIN [Concomitant]
     Dosage: UNK UKN, UNK
  4. AMLODIPINE [Concomitant]
     Dosage: UNK UKN, UNK
  5. BABY ASPIRIN [Concomitant]
     Dosage: UNK UKN, UNK
  6. VITAMIN D3 [Concomitant]
     Dosage: 1000 IU, QD
  7. CALCIUM CITRATE [Concomitant]
     Dosage: 2 DF, QD
  8. LOSARTAN [Concomitant]
     Dosage: UNK UKN, UNK
  9. CLOPIDOGREL [Concomitant]
     Dosage: UNK UKN, UNK

REACTIONS (13)
  - Feeling abnormal [Unknown]
  - Gait disturbance [Unknown]
  - Renal disorder [Unknown]
  - Gastric disorder [Unknown]
  - Tremor [Unknown]
  - Influenza like illness [Unknown]
  - Body temperature increased [Unknown]
  - Diarrhoea [Unknown]
  - Chills [Unknown]
  - Vomiting [Unknown]
  - Bone pain [Unknown]
  - Headache [Unknown]
  - Back pain [Unknown]
